FAERS Safety Report 4509061-2 (Version None)
Quarter: 2004Q4

REPORT INFORMATION
  Report Type: 
  Country: None (occurrence: None)
  Receive Date: 20041025
  Receipt Date: 20030915
  Transmission Date: 20050328
  Serious: Yes (Hospitalization)
  Sender: FDA-Public Use
  Company Number: US-JNJFOC-20030903760

PATIENT
  Sex: Female

DRUGS (1)
  1. REMICADE [Suspect]
     Indication: RHEUMATOID ARTHRITIS
     Dosage: 1 IN 1 DAY INTRAVENOUS
     Route: 042

REACTIONS (2)
  - ANTINUCLEAR ANTIBODY POSITIVE [None]
  - PERICARDIAL EFFUSION [None]
